FAERS Safety Report 22078539 (Version 1)
Quarter: 2023Q1

REPORT INFORMATION
  Report Type: Spontaneous
  Country: US (occurrence: US)
  Receive Date: 20230309
  Receipt Date: 20230309
  Transmission Date: 20230418
  Serious: No
  Sender: FDA-Public Use
  Company Number: US-SA-SAC20230307001040

PATIENT
  Sex: Female

DRUGS (1)
  1. DUPIXENT [Suspect]
     Active Substance: DUPILUMAB
     Dosage: 300MG,OTHER
     Route: 058

REACTIONS (5)
  - Nausea [Recovered/Resolved]
  - Joint swelling [Unknown]
  - Abdominal pain upper [Recovered/Resolved]
  - Alopecia [Unknown]
  - Arthralgia [Unknown]
